FAERS Safety Report 16395106 (Version 1)
Quarter: 2019Q2

REPORT INFORMATION
  Report Type: Spontaneous
  Country: US (occurrence: US)
  Receive Date: 20190605
  Receipt Date: 20190605
  Transmission Date: 20190711
  Serious: No
  Sender: FDA-Public Use
  Company Number: US-ASTRAZENECA-2019SE82904

PATIENT
  Sex: Male

DRUGS (1)
  1. FASENRA [Suspect]
     Active Substance: BENRALIZUMAB
     Dosage: UNKNOWN
     Route: 058

REACTIONS (5)
  - Dyspnoea [Unknown]
  - Abdominal pain lower [Unknown]
  - Asthma [Unknown]
  - Lip swelling [Unknown]
  - Lung disorder [Unknown]

NARRATIVE: CASE EVENT DATE: 20190531
